FAERS Safety Report 10096661 (Version 3)
Quarter: 2014Q2

REPORT INFORMATION
  Report Type: Report from Study
  Country: IT (occurrence: IT)
  Receive Date: 20140422
  Receipt Date: 20140428
  Transmission Date: 20141212
  Serious: Yes (Hospitalization)
  Sender: FDA-Public Use
  Company Number: PHHY2013IT147536

PATIENT
  Age: 69 Year
  Sex: Male
  Weight: 72 kg

DRUGS (3)
  1. AMN107 [Suspect]
     Indication: CHRONIC MYELOID LEUKAEMIA
     Dosage: 300 MG, BID
     Route: 048
     Dates: start: 20101117, end: 20101118
  2. AMN107 [Suspect]
     Dosage: 300 MG, BID
     Route: 048
     Dates: start: 20111217, end: 20140313
  3. CARDISAN [Concomitant]
     Indication: HYPERTENSION
     Dosage: 100 MG
     Dates: start: 20111109

REACTIONS (4)
  - Hemiparesis [Recovered/Resolved]
  - Aqueductal stenosis [Recovering/Resolving]
  - Carotid artery stenosis [Recovering/Resolving]
  - Myocardial ischaemia [Recovered/Resolved with Sequelae]
